FAERS Safety Report 13691611 (Version 4)
Quarter: 2017Q3

REPORT INFORMATION
  Report Type: Spontaneous
  Country: TR (occurrence: TR)
  Receive Date: 20170626
  Receipt Date: 20170905
  Transmission Date: 20171127
  Serious: Yes (Other)
  Sender: FDA-Public Use
  Company Number: TR-BAYER-2017-099836

PATIENT
  Age: 22 Year
  Sex: Female
  Weight: 63 kg

DRUGS (4)
  1. YAZZ 24+4 [Suspect]
     Active Substance: DROSPIRENONE\ETHINYL ESTRADIOL
     Indication: CONTRACEPTION
     Dosage: UNK, QD
     Route: 048
     Dates: start: 201601, end: 201606
  2. YAZZ 24+4 [Suspect]
     Active Substance: DROSPIRENONE\ETHINYL ESTRADIOL
     Indication: CONTRACEPTION
     Dosage: UNK
     Route: 048
     Dates: start: 201607, end: 201609
  3. YAZZ 24+4 [Suspect]
     Active Substance: DROSPIRENONE\ETHINYL ESTRADIOL
     Indication: CONTRACEPTION
     Dosage: UNK, QD
     Route: 048
     Dates: start: 201609, end: 20170528
  4. QLAIRISTA [Suspect]
     Active Substance: DIENOGEST\ESTRADIOL VALERATE
     Indication: CONTRACEPTION
     Dosage: UNK
     Route: 048
     Dates: start: 201509

REACTIONS (12)
  - Abortion threatened [Recovered/Resolved]
  - Vaginal odour [None]
  - Metrorrhagia [Recovered/Resolved]
  - Weight decreased [Recovered/Resolved]
  - Withdrawal bleed [Recovered/Resolved]
  - Maternal exposure before pregnancy [None]
  - Pruritus [Recovered/Resolved]
  - Breast disorder [None]
  - Metrorrhagia [None]
  - Impaired healing [Not Recovered/Not Resolved]
  - Mastitis [Not Recovered/Not Resolved]
  - Suture related complication [Not Recovered/Not Resolved]

NARRATIVE: CASE EVENT DATE: 2016
